FAERS Safety Report 11509118 (Version 1)
Quarter: 2015Q3

REPORT INFORMATION
  Report Type: Spontaneous
  Country: US (occurrence: US)
  Receive Date: 20150903
  Receipt Date: 20150903
  Transmission Date: 20151125
  Serious: No
  Sender: FDA-Public Use
  Company Number: US-ELI_LILLY_AND_COMPANY-US201003001720

PATIENT
  Age: 76 Year
  Sex: Female

DRUGS (4)
  1. HUMALOG MIX75/25 [Suspect]
     Active Substance: INSULIN LISPRO
     Dosage: 60 U, 2/D
  2. HUMALOG MIX75/25 [Suspect]
     Active Substance: INSULIN LISPRO
     Dosage: 30 U, OTHER
  3. HUMALOG MIX75/25 [Suspect]
     Active Substance: INSULIN LISPRO
     Dosage: 60 U, 2/D
  4. HUMALOG MIX75/25 [Suspect]
     Active Substance: INSULIN LISPRO
     Dosage: 30 U, OTHER

REACTIONS (13)
  - Drug ineffective [Unknown]
  - Drug dispensing error [Unknown]
  - Blood glucose increased [Unknown]
  - Injection site bruising [Unknown]
  - Osteoarthritis [Not Recovered/Not Resolved]
  - Headache [Unknown]
  - Malaise [Unknown]
  - Tremor [Unknown]
  - Incorrect dose administered [Unknown]
  - Arthritis [Not Recovered/Not Resolved]
  - Vision blurred [Unknown]
  - Limb injury [Unknown]
  - Blood glucose increased [Not Recovered/Not Resolved]

NARRATIVE: CASE EVENT DATE: 2003
